FAERS Safety Report 7974493-7 (Version None)
Quarter: 2011Q4

REPORT INFORMATION
  Report Type: 
  Country: None (occurrence: None)
  Receive Date: 20111213
  Receipt Date: 20111209
  Transmission Date: 20120403
  Serious: Yes (Other)
  Sender: FDA-Public Use
  Company Number: CHPA2011US11767

PATIENT
  Age: 60 Year
  Sex: Female

DRUGS (2)
  1. PREVACID 24 HR [Suspect]
     Dosage: 15 MG, QD
     Route: 048
  2. PREVACID 24 HR [Suspect]
     Indication: GASTROOESOPHAGEAL REFLUX DISEASE
     Dosage: 15 MG, QD
     Route: 048

REACTIONS (8)
  - INCORRECT DRUG ADMINISTRATION DURATION [None]
  - FALL [None]
  - UPPER LIMB FRACTURE [None]
  - THERAPEUTIC RESPONSE UNEXPECTED [None]
  - OFF LABEL USE [None]
  - ROTATOR CUFF SYNDROME [None]
  - TREATMENT NONCOMPLIANCE [None]
  - NEUROPATHY PERIPHERAL [None]
